FAERS Safety Report 12651362 (Version 1)
Quarter: 2016Q3

REPORT INFORMATION
  Report Type: Spontaneous
  Country: US (occurrence: US)
  Receive Date: 20160815
  Receipt Date: 20160815
  Transmission Date: 20161109
  Serious: No
  Sender: FDA-Public Use
  Company Number: US-BEH-2016072137

PATIENT
  Age: 75 Year
  Sex: Female
  Weight: 95.24 kg

DRUGS (44)
  1. LOMOTIL [Concomitant]
     Active Substance: ATROPINE SULFATE\DIPHENOXYLATE HYDROCHLORIDE
  2. ANTIVERT                           /00007101/ [Concomitant]
     Active Substance: MECLIZINE MONOHYDROCHLORIDE\NIACIN
  3. HYDROCHLOROTHIAZIDE W/TRIAMTERENE [Concomitant]
     Active Substance: HYDROCHLOROTHIAZIDE\TRIAMTERENE
  4. MICARDIS [Concomitant]
     Active Substance: TELMISARTAN
  5. CITRACAL                           /00751520/ [Concomitant]
     Active Substance: CALCIUM CITRATE
  6. HIZENTRA [Suspect]
     Active Substance: HUMAN IMMUNOGLOBULIN G
     Dosage: UNK
     Route: 058
  7. AMOXICILLIN. [Concomitant]
     Active Substance: AMOXICILLIN
  8. CHLORZOXAZONE. [Concomitant]
     Active Substance: CHLORZOXAZONE
  9. ZIAC                               /00821801/ [Concomitant]
     Active Substance: CEFIXIME
  10. ZETONNA [Concomitant]
     Active Substance: CICLESONIDE
  11. NABUMETONE. [Concomitant]
     Active Substance: NABUMETONE
  12. HYOSCYAMINE. [Concomitant]
     Active Substance: HYOSCYAMINE
  13. ASTELIN                            /00085801/ [Concomitant]
     Active Substance: AZELASTINE HYDROCHLORIDE
  14. SYNTHROID [Concomitant]
     Active Substance: LEVOTHYROXINE SODIUM
  15. NEXIUM [Concomitant]
     Active Substance: ESOMEPRAZOLE MAGNESIUM
  16. KLOR-CON [Concomitant]
     Active Substance: POTASSIUM CHLORIDE
  17. OMEPRAZOLE. [Concomitant]
     Active Substance: OMEPRAZOLE
  18. PROAIR HFA [Concomitant]
     Active Substance: ALBUTEROL SULFATE
  19. DIPHENHYDRAMINE. [Concomitant]
     Active Substance: DIPHENHYDRAMINE
  20. NYSTATIN. [Concomitant]
     Active Substance: NYSTATIN
  21. VITAMINS WITH MINERALS [Concomitant]
     Active Substance: MINERALS\VITAMINS
  22. PREDNISONE. [Concomitant]
     Active Substance: PREDNISONE
  23. ADVAIR HFA [Concomitant]
     Active Substance: FLUTICASONE PROPIONATE\SALMETEROL XINAFOATE
  24. HIZENTRA [Suspect]
     Active Substance: HUMAN IMMUNOGLOBULIN G
     Indication: IMMUNODEFICIENCY COMMON VARIABLE
     Dosage: UNK
     Route: 058
  25. BACTROBAN [Concomitant]
     Active Substance: MUPIROCIN\MUPIROCIN CALCIUM
  26. NIZATIDINE. [Concomitant]
     Active Substance: NIZATIDINE
  27. ALLOPURINOL. [Concomitant]
     Active Substance: ALLOPURINOL
  28. XOPENEX [Concomitant]
     Active Substance: LEVALBUTEROL HYDROCHLORIDE
  29. CRESTOR [Concomitant]
     Active Substance: ROSUVASTATIN CALCIUM
  30. TYLENOL [Concomitant]
     Active Substance: ACETAMINOPHEN
  31. SINGULAIR [Concomitant]
     Active Substance: MONTELUKAST SODIUM
  32. PHAZYME                            /00164001/ [Concomitant]
  33. DIFLUCAN [Concomitant]
     Active Substance: FLUCONAZOLE
  34. ASCORBIC ACID. [Concomitant]
     Active Substance: ASCORBIC ACID
  35. ALPRAZOLAM. [Concomitant]
     Active Substance: ALPRAZOLAM
  36. SENOKOT [Concomitant]
     Active Substance: SENNOSIDES
  37. HIZENTRA [Suspect]
     Active Substance: HUMAN IMMUNOGLOBULIN G
     Dosage: 10 G, QW
     Route: 058
     Dates: start: 20111221
  38. TRAMADOL. [Concomitant]
     Active Substance: TRAMADOL
  39. HYDROCORTISONE. [Concomitant]
     Active Substance: HYDROCORTISONE
  40. FEXOFENADINE [Concomitant]
     Active Substance: FEXOFENADINE\FEXOFENADINE HYDROCHLORIDE
  41. ANUSOL                             /00117301/ [Concomitant]
     Active Substance: BALSAM PERU\BISMUTH HYDROXIDE\BISMUTH SUBGALLATE\BORIC ACID\ZINC OXIDE
  42. AVELOX [Concomitant]
     Active Substance: MOXIFLOXACIN HYDROCHLORIDE
  43. LEXAPRO [Concomitant]
     Active Substance: ESCITALOPRAM OXALATE
  44. MELATONIN [Concomitant]
     Active Substance: MELATONIN

REACTIONS (1)
  - Vertigo [Unknown]

NARRATIVE: CASE EVENT DATE: 201603
